FAERS Safety Report 4831961-4 (Version None)
Quarter: 2005Q4

REPORT INFORMATION
  Report Type: 
  Country: None (occurrence: None)
  Receive Date: 20051116
  Receipt Date: 20051111
  Transmission Date: 20060501
  Serious: Yes (Life-Threatening)
  Sender: FDA-Public Use
  Company Number: J081-002-002104

PATIENT
  Age: 71 Year
  Sex: Female

DRUGS (2)
  1. ARICEPT [Suspect]
     Dosage: 5 MG, 1 IN 1 D, ORAL
     Route: 048
     Dates: start: 20050901
  2. DEPAS (ETIZOLAM) [Concomitant]

REACTIONS (1)
  - INTERSTITIAL LUNG DISEASE [None]
